FAERS Safety Report 23479448 (Version 1)
Quarter: 2024Q1

REPORT INFORMATION
  Report Type: Spontaneous
  Country: US (occurrence: US)
  Receive Date: 20240205
  Receipt Date: 20240205
  Transmission Date: 20240409
  Serious: Yes (Hospitalization, Other)
  Sender: FDA-Public Use
  Company Number: US-NOVOPROD-1168221

PATIENT
  Age: 78 Year
  Sex: Female

DRUGS (17)
  1. TRESIBA [Suspect]
     Active Substance: INSULIN DEGLUDEC
     Indication: Type 2 diabetes mellitus
     Dosage: UNK
     Route: 058
  2. GLUCOPHAGE [Concomitant]
     Active Substance: METFORMIN HYDROCHLORIDE
     Indication: Type 2 diabetes mellitus
     Dosage: 500 MG, BID(BREAKFAST DINNER)
     Route: 048
     Dates: start: 20230603, end: 20230530
  3. AVAPRO [Concomitant]
     Active Substance: IRBESARTAN
     Indication: Hyperlipidaemia
     Dosage: 150 MG, QD
     Dates: start: 20221128, end: 20230727
  4. TORSEMIDE [Concomitant]
     Active Substance: TORSEMIDE
     Indication: Essential hypertension
     Dosage: 10 MG, QD
     Dates: start: 20221127, end: 20231228
  5. ATENOLOL [Concomitant]
     Active Substance: ATENOLOL
     Indication: Essential hypertension
     Dosage: 50 MG, QD
  6. SIMVASTATIN [Concomitant]
     Active Substance: SIMVASTATIN
     Indication: Hyperlipidaemia
     Dosage: 20 MG, QD
     Route: 048
     Dates: start: 20221227, end: 20230327
  7. KEPPRA [Concomitant]
     Active Substance: LEVETIRACETAM
     Indication: Myoclonus
     Dosage: 250 MG, BID
     Route: 048
     Dates: start: 20221020
  8. TOPIRAMATE [Concomitant]
     Active Substance: TOPIRAMATE
     Indication: Myoclonus
     Dosage: UNK25 MG, BID
     Route: 048
     Dates: start: 20230130, end: 20230712
  9. ROBAXIN [Concomitant]
     Active Substance: METHOCARBAMOL
     Indication: Muscle spasms
     Dosage: 500 MG, QID
     Route: 048
     Dates: start: 20230306, end: 20230530
  10. ACETAMINOPHEN [Concomitant]
     Active Substance: ACETAMINOPHEN
     Indication: Pain
     Dosage: 325 MG, QID
     Route: 048
     Dates: start: 20230306, end: 20230530
  11. MINERALS\VITAMINS [Concomitant]
     Active Substance: MINERALS\VITAMINS
     Indication: Product used for unknown indication
     Dosage: 1 TABLET AT BEDTIME
     Route: 048
     Dates: start: 20230306, end: 20230530
  12. MIRALAX [Concomitant]
     Active Substance: POLYETHYLENE GLYCOL 3350
     Indication: Constipation
     Dosage: 17 G, QD
     Route: 048
     Dates: start: 20230306, end: 20230530
  13. ASPIRIN [Concomitant]
     Active Substance: ASPIRIN
     Indication: Product used for unknown indication
     Dosage: 81 MG, QD
     Route: 048
     Dates: start: 20220427
  14. MINERALS\VITAMINS [Concomitant]
     Active Substance: MINERALS\VITAMINS
     Indication: Product used for unknown indication
     Dosage: 1 CAPSULE BID
     Route: 048
     Dates: end: 20230530
  15. COVID-19 VACCINE MRNA [Concomitant]
     Indication: Product used for unknown indication
     Dosage: UNK
     Dates: start: 20210217
  16. FLUZONE [Concomitant]
     Active Substance: INFLUENZA A VIRUS A/CALIFORNIA/7/2009 X-179A (H1N1) ANTIGEN (FORMALDEHYDE INACTIVATED)\INFLUENZA A V
     Indication: Product used for unknown indication
     Dosage: UNK
  17. PNEUMOCOCCAL VACCINE POLYVALENT [Concomitant]
     Active Substance: PNEUMOCOCCAL VACCINE POLYVALENT
     Indication: Product used for unknown indication

REACTIONS (11)
  - Fall [Unknown]
  - Femur fracture [Unknown]
  - Post procedural complication [Unknown]
  - Blood loss anaemia [Unknown]
  - Neoplasm skin [Unknown]
  - Systemic inflammatory response syndrome [Recovered/Resolved]
  - Acute kidney injury [Unknown]
  - Orthostatic hypotension [Unknown]
  - Insomnia [Unknown]
  - Exposure to SARS-CoV-2 [Unknown]
  - Vitamin D deficiency [Unknown]

NARRATIVE: CASE EVENT DATE: 20230222
